FAERS Safety Report 13894624 (Version 1)
Quarter: 2017Q3

REPORT INFORMATION
  Report Type: Report from Study
  Country: US (occurrence: US)
  Receive Date: 20170823
  Receipt Date: 20170823
  Transmission Date: 20171127
  Serious: Yes (Hospitalization)
  Sender: FDA-Public Use
  Company Number: US-HORIZON-RAV-0205-2017

PATIENT
  Age: 14 Month
  Sex: Male

DRUGS (1)
  1. RAVICTI [Suspect]
     Active Substance: GLYCEROL PHENYLBUTYRATE
     Indication: UREA CYCLE DISORDER
     Dosage: 1 ML FOLLOWED BY 10 ML OF WATER BY G-TUBE 3 TIMES A DAY

REACTIONS (2)
  - Drug ineffective [Unknown]
  - Hyperammonaemia [Unknown]
